FAERS Safety Report 9395185 (Version 1)
Quarter: 2013Q3

REPORT INFORMATION
  Report Type: Spontaneous
  Country: DE (occurrence: DE)
  Receive Date: 20130705
  Receipt Date: 20130705
  Transmission Date: 20140515
  Serious: Yes (Life-Threatening, Hospitalization)
  Sender: FDA-Public Use
  Company Number: 2013P1011065

PATIENT
  Age: 45 Year
  Sex: Female

DRUGS (1)
  1. MORPHINE [Suspect]

REACTIONS (9)
  - Haemorrhage intracranial [None]
  - Toxicity to various agents [None]
  - Loss of consciousness [None]
  - Suicide attempt [None]
  - Intentional overdose [None]
  - Blood pressure systolic increased [None]
  - Oxygen saturation decreased [None]
  - Depression [None]
  - Brain oedema [None]
